FAERS Safety Report 10576533 (Version 1)
Quarter: 2014Q4

REPORT INFORMATION
  Report Type: Spontaneous
  Country: US (occurrence: None)
  Receive Date: 20141110
  Receipt Date: 20141110
  Transmission Date: 20150529
  Serious: No
  Sender: FDA-Public Use
  Company Number: None

PATIENT
  Age: 32 Year
  Sex: Female
  Weight: 65.77 kg

DRUGS (1)
  1. PARAGARD T380A [Suspect]
     Active Substance: COPPER
     Indication: CONTRACEPTION
     Dates: start: 20130819, end: 20141028

REACTIONS (11)
  - Arthralgia [None]
  - Fatigue [None]
  - Hyperacusis [None]
  - Headache [None]
  - Presyncope [None]
  - Depression [None]
  - Alopecia [None]
  - Photophobia [None]
  - Menorrhagia [None]
  - Dizziness [None]
  - Emotional disorder [None]
